FAERS Safety Report 6531875-8 (Version None)
Quarter: 2010Q1

REPORT INFORMATION
  Report Type: 
  Country: None (occurrence: None)
  Receive Date: 20100108
  Receipt Date: 20100104
  Transmission Date: 20100710
  Serious: Yes (Life-Threatening, Hospitalization, Other)
  Sender: FDA-Public Use
  Company Number: FR-MPIJNJ-2010-00691

PATIENT

DRUGS (3)
  1. VELCADE [Suspect]
     Indication: PLASMACYTOMA
     Dosage: UNK
     Dates: start: 20090820, end: 20090820
  2. FLECAINIDE ACETATE [Suspect]
     Indication: VENTRICULAR EXTRASYSTOLES
     Dosage: UNK
     Route: 048
     Dates: start: 20080101, end: 20090821
  3. DEXAMETHASONE [Concomitant]
     Indication: PLASMACYTOMA
     Dosage: UNK
     Dates: start: 20090817

REACTIONS (2)
  - ARRHYTHMIA SUPRAVENTRICULAR [None]
  - CARDIAC FAILURE [None]
